FAERS Safety Report 4895863-X (Version None)
Quarter: 2006Q1

REPORT INFORMATION
  Report Type: 
  Country: None (occurrence: None)
  Receive Date: 20060125
  Receipt Date: 20040510
  Transmission Date: 20060701
  Serious: Yes (Hospitalization)
  Sender: FDA-Public Use
  Company Number: FR_040403994

PATIENT
  Age: 15 Year
  Sex: Female

DRUGS (9)
  1. VANCOMYCIN [Suspect]
     Dates: start: 20040208, end: 20040222
  2. ONCOVIN [Concomitant]
  3. ADRIAMYCIN PFS [Concomitant]
  4. IFOSFAMIDE [Concomitant]
  5. VEPESID [Concomitant]
  6. AMBISOME [Concomitant]
  7. OFLOXACIN [Concomitant]
  8. BACTRIM [Concomitant]
  9. COLIMYCINE (COLISTIN MESILATE SODIUM) [Concomitant]

REACTIONS (4)
  - PIGMENTATION DISORDER [None]
  - RASH ERYTHEMATOUS [None]
  - SCAR [None]
  - URTICARIA [None]
